FAERS Safety Report 5759879-3 (Version None)
Quarter: 2008Q2

REPORT INFORMATION
  Report Type: 
  Country: None (occurrence: None)
  Receive Date: 20080605
  Receipt Date: 20080529
  Transmission Date: 20081010
  Serious: Yes (Disabling)
  Sender: FDA-Public Use
  Company Number: PHHY2008PE09180

PATIENT
  Sex: Female

DRUGS (5)
  1. ZOLEDRONIC ACID [Suspect]
     Indication: OSTEOPENIA
     Dosage: 5MG/100ML
     Route: 042
     Dates: start: 20080229
  2. ATORVASTATIN [Concomitant]
     Dosage: 10 MG, QD
     Dates: start: 20030101
  3. CINNARIZINE [Concomitant]
     Dosage: 25 MG, QD
     Dates: start: 20030101
  4. CALCIUM WITH VITAMIN D [Concomitant]
     Dosage: UNK
     Dates: start: 20060101
  5. CENTRUM [Concomitant]
     Dosage: UNK
     Dates: start: 19980101

REACTIONS (5)
  - ACTIVITIES OF DAILY LIVING IMPAIRED [None]
  - CAPILLARY FRAGILITY [None]
  - EYE HAEMORRHAGE [None]
  - STRESS [None]
  - VISUAL DISTURBANCE [None]
